FAERS Safety Report 7575481-5 (Version None)
Quarter: 2011Q2

REPORT INFORMATION
  Report Type: 
  Country: None (occurrence: None)
  Receive Date: 20110627
  Receipt Date: 20110616
  Transmission Date: 20111010
  Serious: Yes (Other)
  Sender: FDA-Public Use
  Company Number: PHHY2011GB53079

PATIENT
  Sex: Female

DRUGS (6)
  1. SEROQUEL [Suspect]
     Indication: SCHIZOAFFECTIVE DISORDER BIPOLAR TYPE
     Dosage: 350 MG, (100MG IN THE MORNING AND 250MG AT NIGHT)
     Route: 048
  2. ESCITALOPRAM [Concomitant]
     Indication: ANXIETY
     Route: 065
  3. VALPROATE SODIUM [Concomitant]
     Indication: MOOD ALTERED
  4. SEROQUEL [Suspect]
     Dosage: UNK UKN, BID
  5. RAMIPRIL [Suspect]
     Route: 048
  6. SEROQUEL [Suspect]
     Dosage: 450 MG, UNK

REACTIONS (7)
  - DIARRHOEA [None]
  - DIVERTICULITIS [None]
  - DIZZINESS [None]
  - IRRITABLE BOWEL SYNDROME [None]
  - ANXIETY [None]
  - ORTHOSTATIC HYPOTENSION [None]
  - DRUG INTOLERANCE [None]
